FAERS Safety Report 8034158-2 (Version None)
Quarter: 2012Q1

REPORT INFORMATION
  Report Type: 
  Country: None (occurrence: None)
  Receive Date: 20120110
  Receipt Date: 20120103
  Transmission Date: 20120608
  Serious: Yes (Hospitalization)
  Sender: FDA-Public Use
  Company Number: US-US-EMD SERONO, INC.-7029200

PATIENT
  Sex: Male
  Weight: 62 kg

DRUGS (4)
  1. UNSPECIFIED MEDICATION [Concomitant]
  2. TESTOSTERONE [Concomitant]
  3. SEROSTIM [Suspect]
     Indication: HIV WASTING SYNDROME
     Dates: start: 20040101, end: 20110801
  4. VITAMIN B-12 [Concomitant]

REACTIONS (18)
  - FATIGUE [None]
  - DRUG DOSE OMISSION [None]
  - ATRIAL FIBRILLATION [None]
  - MEMORY IMPAIRMENT [None]
  - ATRIAL FLUTTER [None]
  - GOUT [None]
  - RENAL IMPAIRMENT [None]
  - OEDEMA PERIPHERAL [None]
  - PAIN [None]
  - INFLUENZA LIKE ILLNESS [None]
  - PHANTOM PAIN [None]
  - CARDIAC FAILURE CONGESTIVE [None]
  - THROMBOSIS [None]
  - PERIPHERAL ARTERIAL OCCLUSIVE DISEASE [None]
  - BONE PAIN [None]
  - AMNESIA [None]
  - NEUROPATHY PERIPHERAL [None]
  - LEG AMPUTATION [None]
